FAERS Safety Report 19080690 (Version 1)
Quarter: 2021Q1

REPORT INFORMATION
  Report Type: Spontaneous
  Country: US (occurrence: US)
  Receive Date: 20210331
  Receipt Date: 20210331
  Transmission Date: 20210420
  Serious: Yes (Hospitalization, Other)
  Sender: FDA-Public Use
  Company Number: US-TEVA-2021-US-1895113

PATIENT
  Sex: Male

DRUGS (1)
  1. TRAZODONE HYDROCHLORIDE. [Suspect]
     Active Substance: TRAZODONE HYDROCHLORIDE
     Dosage: TAKING FOR AT LEAST 10 YEARS
     Route: 065

REACTIONS (7)
  - Withdrawal syndrome [Unknown]
  - Feelings of worthlessness [Unknown]
  - Autophobia [Unknown]
  - Fear [Unknown]
  - Suicidal ideation [Unknown]
  - Suicide attempt [Unknown]
  - Aggression [Unknown]
